FAERS Safety Report 5585051-6 (Version None)
Quarter: 2008Q1

REPORT INFORMATION
  Report Type: 
  Country: None (occurrence: None)
  Receive Date: 20080109
  Receipt Date: 20080102
  Transmission Date: 20080703
  Serious: Yes (Death, Hospitalization)
  Sender: FDA-Public Use
  Company Number: FR-JNJFOC-20071007479

PATIENT
  Age: 71 Year
  Sex: Male

DRUGS (8)
  1. REMICADE [Suspect]
     Dosage: THREE INFUSIONS TOTAL.
     Route: 042
  2. REMICADE [Suspect]
     Indication: RHEUMATOID ARTHRITIS
     Dosage: THREE INFUSIONS TOTAL.
     Route: 042
  3. REMICADE [Suspect]
     Indication: ANKYLOSING SPONDYLITIS
     Route: 042
  4. METHOTREXATE [Suspect]
     Dosage: DURATION FOR AT LEAST 3 YEARS
     Route: 058
  5. METHOTREXATE [Suspect]
     Indication: RHEUMATOID ARTHRITIS
     Dosage: DURATION FOR AT LEAST 3 YEARS
     Route: 058
  6. ALTIM [Suspect]
     Indication: JOINT EFFUSION
  7. HUMALOG [Concomitant]
     Indication: TYPE 1 DIABETES MELLITUS
  8. AZITHROMYCIN [Concomitant]

REACTIONS (3)
  - ACUTE RESPIRATORY DISTRESS SYNDROME [None]
  - BRONCHOPULMONARY ASPERGILLOSIS [None]
  - PULMONARY FIBROSIS [None]
